FAERS Safety Report 20896412 (Version 2)
Quarter: 2022Q2

REPORT INFORMATION
  Report Type: Spontaneous
  Country: US (occurrence: US)
  Receive Date: 20220531
  Receipt Date: 20220618
  Transmission Date: 20220720
  Serious: No
  Sender: FDA-Public Use
  Company Number: US-BRISTOL-MYERS SQUIBB COMPANY-2022-035292

PATIENT
  Age: 71 Year
  Sex: Female

DRUGS (2)
  1. REVLIMID [Suspect]
     Active Substance: LENALIDOMIDE
     Indication: Pleuritic pain
     Dosage: TAKE 1 CAPSULE BY MOUTH EVERYDAY ON DAYS 1-28 EVERY 28 DAYS
     Route: 048
  2. REVLIMID [Suspect]
     Active Substance: LENALIDOMIDE
     Dosage: FREQUENCY:  EVERY DAY ON DAYS 1-28 EVERY 28 DAYS.
     Route: 048
     Dates: start: 20200421

REACTIONS (2)
  - Intentional product use issue [Unknown]
  - Product dose omission issue [Unknown]
